FAERS Safety Report 5654851-6 (Version None)
Quarter: 2008Q1

REPORT INFORMATION
  Report Type: 
  Country: None (occurrence: None)
  Receive Date: 20080307
  Receipt Date: 20070827
  Transmission Date: 20080703
  Serious: No
  Sender: FDA-Public Use
  Company Number: A0669476A

PATIENT
  Age: 62 Year
  Sex: Female
  Weight: 61.4 kg

DRUGS (2)
  1. REQUIP [Suspect]
     Indication: RESTLESS LEGS SYNDROME
     Dosage: 1MG SEE DOSAGE TEXT
     Route: 048
     Dates: start: 20070501
  2. VITAMINS [Concomitant]

REACTIONS (6)
  - DRUG INEFFECTIVE [None]
  - DYSKINESIA [None]
  - HYPERHIDROSIS [None]
  - MIDDLE INSOMNIA [None]
  - SOMNOLENCE [None]
  - TEMPERATURE REGULATION DISORDER [None]
